FAERS Safety Report 5613383-1 (Version None)
Quarter: 2008Q1

REPORT INFORMATION
  Report Type: 
  Country: None (occurrence: None)
  Receive Date: 20080129
  Receipt Date: 20080122
  Transmission Date: 20080703
  Serious: Yes (Death, Hospitalization, Other)
  Sender: FDA-Public Use
  Company Number: 20084588

PATIENT
  Age: 79 Year
  Sex: Female

DRUGS (1)
  1. BACLOFEN [Suspect]
     Indication: MUSCLE SPASTICITY
     Dosage: 50-60 MCG, DAILY, INTRATHECAL
     Route: 039

REACTIONS (1)
  - CEREBRAL HAEMORRHAGE [None]
